FAERS Safety Report 7403027-0 (Version None)
Quarter: 2011Q2

REPORT INFORMATION
  Report Type: 
  Country: None (occurrence: None)
  Receive Date: 20110408
  Receipt Date: 20110127
  Transmission Date: 20111010
  Serious: No
  Sender: FDA-Public Use
  Company Number: US-NOVEN-11US001669

PATIENT
  Sex: Male

DRUGS (1)
  1. FENTANYL [Suspect]
     Indication: BACK PAIN
     Dosage: 25 UG, EVERY 72HRS
     Route: 062
     Dates: start: 20110123

REACTIONS (3)
  - THROAT IRRITATION [None]
  - DIZZINESS [None]
  - DYSPNOEA [None]
